FAERS Safety Report 6974661-7 (Version None)
Quarter: 2010Q3

REPORT INFORMATION
  Report Type: 
  Country: None (occurrence: None)
  Receive Date: 20100909
  Receipt Date: 20081209
  Transmission Date: 20110219
  Serious: No
  Sender: FDA-Public Use
  Company Number: US-WYE-H06765708

PATIENT
  Sex: Female
  Weight: 104.42 kg

DRUGS (11)
  1. PRISTIQ [Suspect]
     Indication: MAJOR DEPRESSION
     Route: 048
     Dates: start: 20081027, end: 20081111
  2. PRISTIQ [Suspect]
     Indication: BIPOLAR DISORDER
     Route: 048
     Dates: start: 20081126
  3. SEROQUEL [Concomitant]
  4. KLONOPIN [Concomitant]
  5. NORDETTE-21 [Concomitant]
  6. CLONIDINE [Concomitant]
  7. HYDROCHLOROTHIAZIDE [Concomitant]
  8. MOTRIN [Concomitant]
  9. MACROGOL [Concomitant]
  10. PAXIL [Concomitant]
  11. DEPAKOTE [Concomitant]

REACTIONS (5)
  - ABDOMINAL DISTENSION [None]
  - ABDOMINAL SYMPTOM [None]
  - CONSTIPATION [None]
  - DRY EYE [None]
  - EYE SWELLING [None]
